FAERS Safety Report 8792868 (Version 6)
Quarter: 2014Q1

REPORT INFORMATION
  Report Type: Spontaneous
  Country: CA (occurrence: CA)
  Receive Date: 20120918
  Receipt Date: 20140321
  Transmission Date: 20141002
  Serious: Yes (Other)
  Sender: FDA-Public Use
  Company Number: CA-ASTRAZENECA-2012SE69716

PATIENT
  Age: 89 Year
  Sex: Male

DRUGS (15)
  1. ZOLADEX [Suspect]
     Indication: PROSTATE CANCER
     Route: 058
     Dates: start: 20090304
  2. ZOLADEX [Suspect]
     Indication: PROSTATE CANCER
     Route: 058
     Dates: start: 20120601
  3. ZOLADEX [Suspect]
     Indication: PROSTATE CANCER
     Route: 058
  4. ZYTIGA [Suspect]
     Indication: PROSTATIC SPECIFIC ANTIGEN INCREASED
     Route: 065
  5. XTANDI [Suspect]
     Route: 065
  6. FRAGMIN [Suspect]
     Route: 065
     Dates: start: 20140110
  7. PREDNISONE [Concomitant]
  8. RAMIPRIL [Concomitant]
  9. ATENOLOL [Concomitant]
  10. ATORVASTATIN [Concomitant]
  11. VITAMIN D [Concomitant]
  12. RAPAFLO [Concomitant]
  13. ABIRATERONE [Concomitant]
     Route: 048
  14. ROSUVASTATIN [Concomitant]
     Route: 048
  15. ENZALUTAMIDE [Concomitant]

REACTIONS (16)
  - Weight decreased [Recovering/Resolving]
  - Fatigue [Not Recovered/Not Resolved]
  - Injection site haemorrhage [Recovering/Resolving]
  - Loss of consciousness [Recovering/Resolving]
  - Hydronephrosis [Not Recovered/Not Resolved]
  - Fall [Recovering/Resolving]
  - Gait disturbance [Recovering/Resolving]
  - Venous thrombosis limb [Recovering/Resolving]
  - Lymphadenopathy [Recovering/Resolving]
  - Injection site bruising [Recovering/Resolving]
  - Local swelling [Recovering/Resolving]
  - Malignant neoplasm progression [Not Recovered/Not Resolved]
  - Lethargy [Recovering/Resolving]
  - Pain [Recovering/Resolving]
  - Skin injury [Not Recovered/Not Resolved]
  - Scab [Not Recovered/Not Resolved]
